FAERS Safety Report 7770211-6 (Version None)
Quarter: 2011Q3

REPORT INFORMATION
  Report Type: 
  Country: None (occurrence: None)
  Receive Date: 20110922
  Receipt Date: 20101227
  Transmission Date: 20111222
  Serious: No
  Sender: FDA-Public Use
  Company Number: US-ASTRAZENECA-2010SE60913

PATIENT
  Age: 66 Year
  Sex: Male
  Weight: 108.9 kg

DRUGS (8)
  1. BUPROPION HCL [Concomitant]
  2. SIMVASTATIN [Concomitant]
  3. CLONAZEPAM [Concomitant]
  4. HYDROCHLOROTHIAZIDE [Concomitant]
  5. NOVOLIN 70/30 [Concomitant]
     Dosage: 70/30
  6. LISINOPRIL [Concomitant]
  7. SEROQUEL [Suspect]
     Indication: BIPOLAR DISORDER
     Route: 048
     Dates: start: 20100301
  8. FENOFIBRATE [Concomitant]

REACTIONS (5)
  - TYPE 1 DIABETES MELLITUS [None]
  - WEIGHT INCREASED [None]
  - CATARACT [None]
  - EXOSTOSIS [None]
  - BLOOD INSULIN INCREASED [None]
